FAERS Safety Report 6988625-0 (Version None)
Quarter: 2010Q3

REPORT INFORMATION
  Report Type: 
  Country: None (occurrence: None)
  Receive Date: 20100914
  Receipt Date: 20100827
  Transmission Date: 20110219
  Serious: No
  Sender: FDA-Public Use
  Company Number: 2010P1001136

PATIENT
  Age: 80 Year
  Sex: Female
  Weight: 68.9467 kg

DRUGS (3)
  1. WARFARIN SODIUM [Suspect]
     Dosage: 2.5 MG; QD; PO
     Route: 048
     Dates: start: 20090101, end: 20100701
  2. LISINOPRIL [Concomitant]
  3. EYE DROPS [Concomitant]

REACTIONS (6)
  - ARTHRALGIA [None]
  - ASTHENIA [None]
  - BACK PAIN [None]
  - EYE HAEMORRHAGE [None]
  - MOBILITY DECREASED [None]
  - PAIN IN EXTREMITY [None]
